FAERS Safety Report 9230948 (Version 1)
Quarter: 2013Q1

REPORT INFORMATION
  Report Type: Spontaneous
  Country: US (occurrence: None)
  Receive Date: 20121031
  Receipt Date: 20121031
  Transmission Date: 20140127
  Serious: No
  Sender: FDA-Public Use
  Company Number: PHEH2012US011152

PATIENT
  Age: 51 Year
  Sex: Female

DRUGS (10)
  1. GILENYA (FTY)CAPSULE, 0.5 MG [Suspect]
     Indication: MULTIPLE SCLEROSIS
     Route: 048
     Dates: start: 20120314
  2. CYMBALTA (DULOXETINE HYDROCHLORDIDE) [Concomitant]
  3. RECLAST (ZOLEDRONIC ACID) [Concomitant]
  4. TUMS (CALCIUM CARBONATE) [Concomitant]
  5. ALPRAZOLAM (ALPRAZOLAM) [Concomitant]
  6. LEVOTHYROXINE (LEVOTHYROXINE) [Concomitant]
  7. VITAMIN B12 (CYANOBALMIN) [Concomitant]
  8. FISH OIL (FISH OIL) [Concomitant]
  9. VITAMIN D (ERGOCALCIFEROL) [Concomitant]
  10. MULTIVITAMINS (ASCORBIC ACID,M ERGOCALCIFEROL, FOLIC ACID, NICOTINAMIDE, PANTHENOL, RETINOL. RIBOFLAVIN, THAIMAINE HYDROCHLORIDE) [Concomitant]

REACTIONS (7)
  - Contusion [None]
  - Swelling [None]
  - Skin discolouration [None]
  - Fall [None]
  - Dysphonia [None]
  - Otorrhoea [None]
  - Haematoma [None]
